FAERS Safety Report 9705358 (Version 3)
Quarter: 2014Q3

REPORT INFORMATION
  Report Type: Spontaneous
  Country: JP (occurrence: JP)
  Receive Date: 20131122
  Receipt Date: 20140926
  Transmission Date: 20150326
  Serious: Yes (Life-Threatening)
  Sender: FDA-Public Use
  Company Number: JP-BRISTOL-MYERS SQUIBB COMPANY-19815695

PATIENT
  Age: 72 Year
  Sex: Female
  Weight: 55 kg

DRUGS (12)
  1. ONGLYZA [Suspect]
     Active Substance: SAXAGLIPTIN HYDROCHLORIDE
     Indication: DIABETES MELLITUS
     Dosage: INTERRUPTED:01NOV13
     Route: 048
     Dates: start: 20130913, end: 20131101
  2. PANALDINE [Concomitant]
     Active Substance: TICLOPIDINE HYDROCHLORIDE
     Route: 048
  3. OLMETEC [Concomitant]
     Active Substance: OLMESARTAN MEDOXOMIL
     Dosage: TAB
     Dates: end: 20131101
  4. PANALDINE [Concomitant]
     Active Substance: TICLOPIDINE HYDROCHLORIDE
     Route: 048
     Dates: end: 20131101
  5. AMLODIN [Concomitant]
     Active Substance: AMLODIPINE BESYLATE
     Dosage: OD TAB
     Route: 048
     Dates: end: 20131101
  6. ZANTAC [Concomitant]
     Active Substance: RANITIDINE HYDROCHLORIDE
     Dosage: TAB
     Dates: end: 20131101
  7. CRESTOR [Concomitant]
     Active Substance: ROSUVASTATIN CALCIUM
     Dosage: TAB
     Dates: end: 20131101
  8. BACAMPICILLIN HCL [Concomitant]
     Dates: start: 20131029, end: 20131103
  9. BASEN [Concomitant]
     Active Substance: VOGLIBOSE
     Dosage: TAB
     Dates: start: 20130408, end: 20131101
  10. CLARITH [Concomitant]
     Active Substance: CLARITHROMYCIN
     Dates: start: 20131029, end: 20131103
  11. BAYASPIRIN [Concomitant]
     Active Substance: ASPIRIN
     Dosage: ENTERIC TAB
     Dates: end: 20131101
  12. ALOSITOL [Concomitant]
     Active Substance: ALLOPURINOL
     Dosage: TAB
     Dates: end: 20131101

REACTIONS (1)
  - Acute myocardial infarction [Recovering/Resolving]

NARRATIVE: CASE EVENT DATE: 20131101
